FAERS Safety Report 10082985 (Version 2)
Quarter: 2014Q2

REPORT INFORMATION
  Report Type: Report from Study
  Country: DE (occurrence: DE)
  Receive Date: 20140417
  Receipt Date: 20140430
  Transmission Date: 20141212
  Serious: Yes (Hospitalization)
  Sender: FDA-Public Use
  Company Number: DE-MERCK-1404DEU009633

PATIENT
  Age: 55 Year
  Sex: Male
  Weight: 78 kg

DRUGS (7)
  1. BOCEPREVIR [Suspect]
     Indication: CHRONIC HEPATITIS C
     Dosage: 2400 MG/DAY
     Route: 048
     Dates: start: 20131230
  2. REBETOL [Suspect]
     Indication: CHRONIC HEPATITIS C
     Dosage: 1000 MG/DAY
     Route: 048
     Dates: start: 20131202, end: 20140113
  3. REBETOL [Suspect]
     Dosage: 800 MG/DAY
     Route: 048
     Dates: start: 20140114, end: 20140306
  4. REBETOL [Suspect]
     Dosage: 400 MG/DAY
     Route: 048
     Dates: start: 20140307, end: 20140309
  5. REBETOL [Suspect]
     Dosage: 200 MG/DAY
     Route: 048
     Dates: start: 20140310
  6. PEGINTRON [Suspect]
     Indication: CHRONIC HEPATITIS C
     Dosage: 120 MICROGRAM PER KILOGRAM, QW
     Route: 058
     Dates: start: 20131202
  7. PEGINTRON [Suspect]
     Dosage: 100 MICROGRAM PER KILOGRAM, QW
     Route: 058
     Dates: start: 20140114

REACTIONS (1)
  - Ascites [Recovered/Resolved]
